FAERS Safety Report 19097420 (Version 15)
Quarter: 2024Q4

REPORT INFORMATION
  Report Type: Spontaneous
  Country: US (occurrence: US)
  Receive Date: 20210406
  Receipt Date: 20241118
  Transmission Date: 20250115
  Serious: No
  Sender: PFIZER
  Company Number: US-PFIZER INC-2021274395

PATIENT
  Age: 60 Year
  Sex: Female
  Weight: 90.249 kg

DRUGS (5)
  1. LORBRENA [Suspect]
     Active Substance: LORLATINIB
     Indication: Non-small cell lung cancer
     Dosage: 100 MG, DAILY (ONE 100 MG TABLET DAILY)
     Route: 048
     Dates: start: 20201001
  2. LORBRENA [Suspect]
     Active Substance: LORLATINIB
     Indication: Lung adenocarcinoma stage II
     Dosage: 75 MG, CYCLIC (75 MG ONCE DAILY FOR DAYS 1-28 FOR A 28 DAY CYCLE)
     Route: 048
  3. LORBRENA [Suspect]
     Active Substance: LORLATINIB
     Dosage: 75 MG, 1X/DAY (25 MG TABLET 3 P.O.Q. DAY)
     Route: 048
  4. LORBRENA [Suspect]
     Active Substance: LORLATINIB
     Dosage: 25 MG 3 X TIMES DAILY
     Route: 048
  5. LEVOFLOXACIN [Concomitant]
     Active Substance: LEVOFLOXACIN
     Dosage: 500 MG

REACTIONS (9)
  - Musculoskeletal disorder [Unknown]
  - Flatulence [Unknown]
  - Pulmonary mass [Unknown]
  - Lymphocyte percentage decreased [Unknown]
  - Platelet count decreased [Unknown]
  - Monocyte count increased [Unknown]
  - Monocyte percentage increased [Unknown]
  - Neoplasm progression [Unknown]
  - Product prescribing error [Unknown]
